FAERS Safety Report 17165498 (Version 1)
Quarter: 2019Q4

REPORT INFORMATION
  Report Type: Spontaneous
  Country: US (occurrence: US)
  Receive Date: 20191217
  Receipt Date: 20191217
  Transmission Date: 20200122
  Serious: No
  Sender: FDA-Public Use
  Company Number: US-ROCHE-2249798

PATIENT
  Age: 76 Year
  Sex: Female
  Weight: 54.48 kg

DRUGS (1)
  1. LUCENTIS [Suspect]
     Active Substance: RANIBIZUMAB
     Indication: DETACHMENT OF RETINAL PIGMENT EPITHELIUM
     Route: 050
     Dates: start: 201811

REACTIONS (5)
  - Anxiety [Unknown]
  - Drug hypersensitivity [Unknown]
  - Off label use [Unknown]
  - Intentional product use issue [Unknown]
  - Vision blurred [Not Recovered/Not Resolved]

NARRATIVE: CASE EVENT DATE: 20190117
